FAERS Safety Report 5859859-3 (Version None)
Quarter: 2008Q3

REPORT INFORMATION
  Report Type: 
  Country: None (occurrence: None)
  Receive Date: 20080827
  Receipt Date: 20080820
  Transmission Date: 20090109
  Serious: Yes (Other)
  Sender: FDA-Public Use
  Company Number: US-NOVOPROD-278642

PATIENT
  Age: 11 Year
  Sex: Female
  Weight: 33 kg

DRUGS (4)
  1. NORDITROPIN [Suspect]
     Indication: GROWTH HORMONE DEFICIENCY
     Dosage: 15 MG, UNK
     Route: 058
     Dates: start: 20071001
  2. METHOTREXATE [Concomitant]
     Indication: JUVENILE ARTHRITIS
  3. PLAQUENIL                          /00072601/ [Concomitant]
     Indication: JUVENILE ARTHRITIS
  4. FOLIC ACID [Concomitant]
     Indication: JUVENILE ARTHRITIS

REACTIONS (1)
  - SCOLIOSIS [None]
